FAERS Safety Report 25631713 (Version 3)
Quarter: 2025Q3

REPORT INFORMATION
  Report Type: Spontaneous
  Country: US (occurrence: US)
  Receive Date: 20250801
  Receipt Date: 20250922
  Transmission Date: 20251020
  Serious: No
  Sender: CIPLA
  Company Number: US-CIPLA LTD.-2025US09351

PATIENT

DRUGS (1)
  1. DICLOFENAC [Suspect]
     Active Substance: DICLOFENAC
     Route: 065

REACTIONS (4)
  - Asthma [Unknown]
  - Perfume sensitivity [Unknown]
  - Accidental exposure to product [Unknown]
  - Product odour abnormal [Unknown]
